FAERS Safety Report 6919702-8 (Version None)
Quarter: 2010Q3

REPORT INFORMATION
  Report Type: 
  Country: None (occurrence: None)
  Receive Date: 20100811
  Receipt Date: 20100614
  Transmission Date: 20110219
  Serious: Yes (Other)
  Sender: FDA-Public Use
  Company Number: US-BRISTOL-MYERS SQUIBB COMPANY-15093677

PATIENT
  Age: 82 Year
  Sex: Female

DRUGS (1)
  1. IXEMPRA KIT [Suspect]
     Indication: BREAST CANCER METASTATIC
     Dosage: REDUCED TO 24MG PER WEEK. TREATMENT DATES:5MAY10,12MAY10,19MAY10,02JUN10 AND ON 09JUN10
     Dates: start: 20100414

REACTIONS (4)
  - ASTHENIA [None]
  - FATIGUE [None]
  - MALIGNANT NEOPLASM PROGRESSION [None]
  - VOMITING [None]
